FAERS Safety Report 5883682-7 (Version None)
Quarter: 2008Q3

REPORT INFORMATION
  Report Type: 
  Country: None (occurrence: None)
  Receive Date: 20080912
  Receipt Date: 20080912
  Transmission Date: 20090109
  Serious: No
  Sender: FDA-Public Use
  Company Number: None

PATIENT
  Sex: Male
  Weight: 65.7716 kg

DRUGS (1)
  1. ENBREL [Suspect]
     Indication: PSORIATIC ARTHROPATHY
     Dosage: 50 MG BIW SQ
     Route: 058
     Dates: start: 20080401, end: 20080531

REACTIONS (3)
  - ARTHROPOD BITE [None]
  - SKIN ULCER [None]
  - STAPHYLOCOCCAL INFECTION [None]
